FAERS Safety Report 7963721-X (Version None)
Quarter: 2011Q4

REPORT INFORMATION
  Report Type: 
  Country: None (occurrence: None)
  Receive Date: 20111208
  Receipt Date: 20111028
  Transmission Date: 20120403
  Serious: No
  Sender: FDA-Public Use
  Company Number: US-BAYER-2011-106206

PATIENT

DRUGS (2)
  1. ALEVE (CAPLET) [Suspect]
     Indication: ABDOMINAL PAIN
     Dosage: 4 DF, UNK
  2. ALEVE (CAPLET) [Suspect]
     Indication: PAIN

REACTIONS (3)
  - ABDOMINAL PAIN [None]
  - NO ADVERSE EVENT [None]
  - PAIN [None]
